FAERS Safety Report 7813215-7 (Version None)
Quarter: 2011Q4

REPORT INFORMATION
  Report Type: 
  Country: None (occurrence: None)
  Receive Date: 20111013
  Receipt Date: 20110930
  Transmission Date: 20120403
  Serious: Yes (Other)
  Sender: FDA-Public Use
  Company Number: US-BAYER-2011-027670

PATIENT
  Age: 30 Year
  Sex: Female
  Weight: 86.168 kg

DRUGS (7)
  1. YASMIN [Suspect]
     Indication: CONTRACEPTION
     Dosage: UNK
     Dates: start: 20030801, end: 20040401
  2. HYDROCHLOROTHIAZIDE [Concomitant]
  3. LORTAB [Concomitant]
     Dosage: 50 MG, QID
     Route: 048
     Dates: start: 20050826
  4. YAZ [Suspect]
     Indication: CONTRACEPTION
  5. REGLAN [Concomitant]
     Dosage: 5 MG, UNK
     Dates: start: 20050826
  6. PEPCID [Concomitant]
     Dosage: 20 MG, BID
     Route: 048
     Dates: start: 20050826
  7. MICARDIS HCT [Concomitant]
     Dosage: 80 MG, ONCE
     Dates: start: 20050101

REACTIONS (4)
  - CHOLELITHIASIS [None]
  - PAIN [None]
  - INJURY [None]
  - ABDOMINAL PAIN UPPER [None]
